FAERS Safety Report 9604229 (Version 2)
Quarter: 2013Q4

REPORT INFORMATION
  Report Type: Spontaneous
  Country: RU (occurrence: RU)
  Receive Date: 20131008
  Receipt Date: 20131125
  Transmission Date: 20140711
  Serious: Yes (Other)
  Sender: FDA-Public Use
  Company Number: RU-ROCHE-1285111

PATIENT
  Age: 53 Year
  Sex: Female
  Weight: 85 kg

DRUGS (3)
  1. HERCEPTIN [Suspect]
     Indication: BREAST CANCER METASTATIC
     Route: 042
     Dates: start: 20121225, end: 20130815
  2. HERCEPTIN [Suspect]
     Route: 042
     Dates: start: 20130926
  3. ZOLEDRONIC ACID [Concomitant]
     Indication: METASTASES TO BONE
     Route: 042
     Dates: start: 20121023

REACTIONS (3)
  - Dyspnoea exertional [Recovered/Resolved]
  - Angina pectoris [Recovered/Resolved]
  - Fatigue [Recovered/Resolved]
